FAERS Safety Report 8914108 (Version 1)
Quarter: 2012Q4

REPORT INFORMATION
  Report Type: 
  Country: US (occurrence: US)
  Receive Date: 20121119
  Receipt Date: 20121119
  Transmission Date: 20130627
  Serious: Yes (Hospitalization, Other)
  Sender: FDA-Public Use
  Company Number: US-AMGEN-USASP2012073264

PATIENT
  Age: 62 Year
  Sex: Female

DRUGS (1)
  1. ENBREL [Suspect]
     Indication: RHEUMATOID ARTHRITIS
     Dosage: 25 mg, 2 times/wk
     Dates: start: 20040106, end: 20121002

REACTIONS (10)
  - Antibiotic therapy [Recovered/Resolved]
  - Herpes zoster [Recovered/Resolved]
  - Headache [Recovered/Resolved]
  - Eye pain [Recovered/Resolved]
  - Mass [Recovered/Resolved]
  - Blister [Recovered/Resolved]
  - Eye swelling [Recovered/Resolved]
  - Scar [Recovered/Resolved]
  - Skin discolouration [Recovered/Resolved]
  - Skin lesion [Recovered/Resolved]
